FAERS Safety Report 17999558 (Version 1)
Quarter: 2020Q3

REPORT INFORMATION
  Report Type: Spontaneous
  Country: US (occurrence: US)
  Receive Date: 20200709
  Receipt Date: 20200709
  Transmission Date: 20201103
  Serious: Yes (Hospitalization)
  Sender: FDA-Public Use
  Company Number: None

PATIENT
  Age: 76 Year
  Sex: Male
  Weight: 86.8 kg

DRUGS (3)
  1. VELCADE [Suspect]
     Active Substance: BORTEZOMIB
     Dates: end: 20170110
  2. DEXAMETHASONE. [Suspect]
     Active Substance: DEXAMETHASONE
     Dates: end: 20170111
  3. LENALIDOMIDE (CC?5013) [Suspect]
     Active Substance: LENALIDOMIDE
     Dates: end: 20171206

REACTIONS (10)
  - Hypoxia [None]
  - Haematoma [None]
  - Burns third degree [None]
  - Contusion [None]
  - Chest discomfort [None]
  - Facial bones fracture [None]
  - Burns second degree [None]
  - Skin laceration [None]
  - Blast injury [None]
  - Coronary artery stenosis [None]

NARRATIVE: CASE EVENT DATE: 20171206
